FAERS Safety Report 9173881 (Version 1)
Quarter: 2013Q1

REPORT INFORMATION
  Report Type: Other
  Country: JP (occurrence: JP)
  Receive Date: 20130320
  Receipt Date: 20130320
  Transmission Date: 20140127
  Serious: Yes (Death)
  Sender: FDA-Public Use
  Company Number: JP-BRISTOL-MYERS SQUIBB COMPANY-17477084

PATIENT
  Age: 54 Year
  Sex: Male

DRUGS (4)
  1. METGLUCO [Suspect]
     Indication: DIABETES MELLITUS
     Route: 048
  2. GLIBENCLAMIDE [Concomitant]
  3. PIOGLITAZONE HCL [Concomitant]
  4. SITAGLIPTIN PHOSPHATE [Concomitant]

REACTIONS (3)
  - Renal failure acute [Fatal]
  - Acidosis [Fatal]
  - Intentional overdose [Fatal]
